FAERS Safety Report 9459958 (Version 2)
Quarter: 2013Q3

REPORT INFORMATION
  Report Type: Spontaneous
  Country: JP (occurrence: JP)
  Receive Date: 20130815
  Receipt Date: 20130830
  Transmission Date: 20140515
  Serious: Yes (Hospitalization)
  Sender: FDA-Public Use
  Company Number: JP-ABBOTT-13X-087-1132627-00

PATIENT
  Age: 75 Year
  Sex: Female
  Weight: 28.4 kg

DRUGS (4)
  1. KLARICID [Suspect]
     Indication: MYCOBACTERIAL INFECTION
  2. ETHAMBUTOL HYDROCHLORIDE [Suspect]
     Indication: MYCOBACTERIAL INFECTION
  3. RIFAMPICIN [Suspect]
     Indication: MYCOBACTERIAL INFECTION
  4. KANAMYCIN SULPHATE [Suspect]
     Indication: MYCOBACTERIAL INFECTION
     Dosage: INTRAVENOUS INFUSION
     Route: 042

REACTIONS (2)
  - Chronic respiratory failure [Unknown]
  - Condition aggravated [Unknown]
